FAERS Safety Report 9007538 (Version 2)
Quarter: 2013Q1

REPORT INFORMATION
  Report Type: Spontaneous
  Country: FR (occurrence: FR)
  Receive Date: 20130111
  Receipt Date: 20130206
  Transmission Date: 20140127
  Serious: Yes (Hospitalization, Other)
  Sender: FDA-Public Use
  Company Number: FR-ELI_LILLY_AND_COMPANY-FR201301001678

PATIENT
  Sex: Female
  Weight: 56 kg

DRUGS (7)
  1. GEMZAR [Suspect]
     Indication: PANCREATIC CARCINOMA
     Dosage: 1640 MG, UNK
     Route: 042
     Dates: start: 20120416, end: 20120918
  2. PARIET [Concomitant]
     Dosage: 1 DF, QD
  3. AROMASINE [Concomitant]
     Dosage: 1 DF, QD
  4. TIORFAN [Concomitant]
     Dosage: UNK, PRN
  5. EFFEXOR [Concomitant]
     Dosage: 1 DF, QD
  6. LYRICA [Concomitant]
  7. EUPRESSYL [Concomitant]

REACTIONS (12)
  - Thrombotic microangiopathy [Not Recovered/Not Resolved]
  - Cutaneous vasculitis [Recovering/Resolving]
  - Pleural effusion [Unknown]
  - Cerebral microangiopathy [Not Recovered/Not Resolved]
  - Glomerulonephropathy [Not Recovered/Not Resolved]
  - Retinopathy hypertensive [Unknown]
  - Hypertensive crisis [Recovering/Resolving]
  - Cerebellar syndrome [Recovering/Resolving]
  - Autonomic nervous system imbalance [Recovered/Resolved]
  - Orthostatic hypotension [Recovered/Resolved]
  - Hallucination, visual [Recovering/Resolving]
  - Fall [Recovering/Resolving]
